FAERS Safety Report 24092877 (Version 1)
Quarter: 2024Q3

REPORT INFORMATION
  Report Type: Spontaneous
  Country: US (occurrence: US)
  Receive Date: 20240715
  Receipt Date: 20240715
  Transmission Date: 20241017
  Serious: No
  Sender: MYLAN
  Company Number: US-MYLANLABS-2024M1064693

PATIENT
  Sex: Male

DRUGS (1)
  1. FENTANYL TRANSDERMAL SYSTEM [Suspect]
     Active Substance: FENTANYL
     Indication: Injury
     Dosage: 25 MICROGRAM, QH (EVERY 72 HOURS)
     Route: 062

REACTIONS (2)
  - Loss of personal independence in daily activities [Unknown]
  - Insomnia [Unknown]
